FAERS Safety Report 5118181-3 (Version None)
Quarter: 2006Q3

REPORT INFORMATION
  Report Type: 
  Country: None (occurrence: None)
  Receive Date: 20060926
  Receipt Date: 20060908
  Transmission Date: 20061208
  Serious: Yes (Other)
  Sender: FDA-Public Use
  Company Number: DE200609003028

PATIENT
  Age: 39 Year
  Sex: Male

DRUGS (4)
  1. CYMBALTA(DULOXETINE HYDROCHLORIDE) CAPSULE [Suspect]
     Indication: DEPRESSION
     Dosage: 30 MG, DAILY (1/D), ORAL
     Route: 048
     Dates: start: 20060201, end: 20060701
  2. BEZAFIBRATE (BEZAFIBRATE) [Concomitant]
  3. THYROID HORMONES [Concomitant]
  4. CYMBALTA [Suspect]
     Dosage: 30 MG, DAILY (1/D), ORAL
     Route: 048
     Dates: start: 20060201, end: 20060701

REACTIONS (2)
  - HAEMATOMA [None]
  - TRAUMATIC HAEMATOMA [None]
